FAERS Safety Report 22244417 (Version 1)
Quarter: 2023Q2

REPORT INFORMATION
  Report Type: Spontaneous
  Country: IT (occurrence: IT)
  Receive Date: 20230424
  Receipt Date: 20230424
  Transmission Date: 20230722
  Serious: Yes (Other)
  Sender: FDA-Public Use
  Company Number: None

PATIENT
  Age: 10 Year
  Sex: Male
  Weight: 82 kg

DRUGS (1)
  1. ACYCLOVIR [Suspect]
     Active Substance: ACYCLOVIR
     Indication: Stomatitis
     Dosage: 10 ML, Q4H (10 ML OGNI 6 ORE X 5 GG)
     Route: 048
     Dates: start: 20230407, end: 20230409

REACTIONS (1)
  - Hallucination, visual [Recovered/Resolved]
